FAERS Safety Report 8789575 (Version 1)
Quarter: 2012Q4

REPORT INFORMATION
  Report Type: Spontaneous
  Country: US (occurrence: None)
  Receive Date: 20120910
  Receipt Date: 20120910
  Transmission Date: 20130627
  Serious: Yes (Life-Threatening)
  Sender: FDA-Public Use
  Company Number: None

PATIENT
  Age: 73 Year
  Sex: Male
  Weight: 76.2 kg

DRUGS (1)
  1. PRAMOXINE [Suspect]
     Dosage: 12f6

REACTIONS (4)
  - Drug hypersensitivity [None]
  - Urticaria [None]
  - Swollen tongue [None]
  - Lip swelling [None]
